FAERS Safety Report 5800708-7 (Version None)
Quarter: 2008Q3

REPORT INFORMATION
  Report Type: 
  Country: None (occurrence: None)
  Receive Date: 20080703
  Receipt Date: 20080627
  Transmission Date: 20090109
  Serious: Yes (Hospitalization)
  Sender: FDA-Public Use
  Company Number: FR-ABBOTT-08P-056-0459982-00

PATIENT
  Sex: Female

DRUGS (7)
  1. NAXY [Suspect]
     Indication: BRONCHITIS
     Route: 048
     Dates: start: 20071231
  2. FLUINDIONE [Interacting]
     Indication: DRUG USE FOR UNKNOWN INDICATION
     Dates: end: 20080104
  3. FLUINDIONE [Interacting]
     Dates: start: 20080101
  4. PREDNISOLONE SODIUM SULFOBENZOATE [Suspect]
     Indication: DRUG USE FOR UNKNOWN INDICATION
     Dates: start: 20080102
  5. SPIRONOLACTONE [Concomitant]
     Indication: DRUG USE FOR UNKNOWN INDICATION
     Route: 048
  6. FUROSEMIDE [Concomitant]
     Indication: DRUG USE FOR UNKNOWN INDICATION
     Route: 048
  7. PIRIBEDIL [Concomitant]
     Indication: DRUG USE FOR UNKNOWN INDICATION
     Route: 048

REACTIONS (4)
  - DRUG INTERACTION [None]
  - HAEMANGIOMA [None]
  - OVERDOSE [None]
  - RECTAL HAEMORRHAGE [None]
